FAERS Safety Report 20899984 (Version 1)
Quarter: 2022Q2

REPORT INFORMATION
  Report Type: Spontaneous
  Country: US (occurrence: None)
  Receive Date: 20220531
  Receipt Date: 20220531
  Transmission Date: 20220720
  Serious: Yes (Death)
  Sender: FDA-Public Use
  Company Number: None

PATIENT
  Age: 88 Year
  Sex: Female

DRUGS (1)
  1. KEYTRUDA [Suspect]
     Active Substance: PEMBROLIZUMAB
     Indication: Breast cancer
     Route: 042
     Dates: start: 20220501, end: 20220501

REACTIONS (4)
  - Adverse drug reaction [None]
  - General physical health deterioration [None]
  - Myasthenia gravis [None]
  - Disease complication [None]

NARRATIVE: CASE EVENT DATE: 20220501
